FAERS Safety Report 8769563 (Version 2)
Quarter: 2015Q4

REPORT INFORMATION
  Report Type: Spontaneous
  Country: US (occurrence: US)
  Receive Date: 20120905
  Receipt Date: 20151228
  Transmission Date: 20160305
  Serious: Yes (Hospitalization, Other)
  Sender: FDA-Public Use
  Company Number: US-BAYER-2012-090692

PATIENT
  Age: 29 Year
  Sex: Female

DRUGS (4)
  1. ADIPEX-P [Concomitant]
     Active Substance: PHENTERMINE HYDROCHLORIDE
     Route: 048
  2. POTASSIUM [Concomitant]
     Active Substance: POTASSIUM
     Indication: HYPOKALAEMIA
  3. COCAINE [Concomitant]
     Active Substance: COCAINE
     Dosage: 1 TIME A WEEK
  4. YAZ [Suspect]
     Active Substance: DROSPIRENONE\ETHINYL ESTRADIOL

REACTIONS (2)
  - Embolism arterial [None]
  - Acute myocardial infarction [None]

NARRATIVE: CASE EVENT DATE: 20081211
